FAERS Safety Report 4358915-9 (Version None)
Quarter: 2004Q2

REPORT INFORMATION
  Report Type: 
  Country: None (occurrence: None)
  Receive Date: 20040517
  Receipt Date: 20040427
  Transmission Date: 20050107
  Serious: Yes (Hospitalization)
  Sender: FDA-Public Use
  Company Number: US-BRISTOL-MYERS SQUIBB COMPANY-12571964

PATIENT
  Age: 53 Year
  Sex: Female
  Weight: 77 kg

DRUGS (4)
  1. GLUCOPHAGE [Suspect]
     Indication: DIABETES MELLITUS
     Route: 048
  2. ZESTORETIC [Concomitant]
     Dosage: DOSE:  20/12.5 MILLIGRAMS DAILY;  DURATION OF THERAPY:  ^FEW YEARS^
  3. SEREVENT [Concomitant]
     Dosage: INHALER
  4. FLOVENT [Concomitant]
     Dosage: INHALER

REACTIONS (2)
  - COLITIS ISCHAEMIC [None]
  - DEHYDRATION [None]
